FAERS Safety Report 7301609-8 (Version None)
Quarter: 2011Q1

REPORT INFORMATION
  Report Type: 
  Country: None (occurrence: None)
  Receive Date: 20110218
  Receipt Date: 20110214
  Transmission Date: 20110831
  Serious: Yes (Hospitalization, Other)
  Sender: FDA-Public Use
  Company Number: US-US-EMD SERONO, INC.-7011553

PATIENT
  Sex: Female

DRUGS (3)
  1. REBIF [Suspect]
     Route: 058
     Dates: start: 20100101
  2. REBIF [Suspect]
     Indication: MULTIPLE SCLEROSIS
     Route: 058
     Dates: start: 20100716, end: 20100101
  3. REBIF [Suspect]
     Route: 058
     Dates: start: 20100101, end: 20100101

REACTIONS (7)
  - POST PROCEDURAL INFECTION [None]
  - FLANK PAIN [None]
  - CHILLS [None]
  - BLADDER INJURY [None]
  - INFECTION [None]
  - VAGINAL DISORDER [None]
  - INJECTION SITE PAIN [None]
